FAERS Safety Report 25769352 (Version 2)
Quarter: 2025Q3

REPORT INFORMATION
  Report Type: Spontaneous
  Country: CA (occurrence: CA)
  Receive Date: 20250906
  Receipt Date: 20250925
  Transmission Date: 20251021
  Serious: Yes (Other)
  Sender: CELLTRION
  Company Number: CA-CELLTRION INC.-2025CA031439

PATIENT

DRUGS (2)
  1. OMALIZUMAB [Suspect]
     Active Substance: OMALIZUMAB
     Indication: Chronic spontaneous urticaria
     Dosage: 300 MILLIGRAM, 1 EVERY 4 WEEKS
     Route: 065
  2. OMALIZUMAB [Suspect]
     Active Substance: OMALIZUMAB
     Dosage: 450 MILLIGRAM, 1 EVERY 4 WEEKS
     Route: 065

REACTIONS (4)
  - Urticaria [Unknown]
  - Off label use [Unknown]
  - Drug ineffective [Unknown]
  - Overdose [Unknown]
